FAERS Safety Report 8619557-X (Version None)
Quarter: 2012Q3

REPORT INFORMATION
  Report Type: 
  Country: None (occurrence: None)
  Receive Date: 20120824
  Receipt Date: 20120409
  Transmission Date: 20120928
  Serious: No
  Sender: FDA-Public Use
  Company Number: US-ASTRAZENECA-2012SE23560

PATIENT
  Age: 77 Year
  Sex: Female
  Weight: 80 kg

DRUGS (4)
  1. BYSTOLIC [Concomitant]
     Indication: HYPERTENSION
  2. SYMBICORT [Suspect]
     Indication: DYSPNOEA
     Dosage: TOTAL DAILY DOSE: 160 MCG/ 2 DOSES, 1 PUFF EACH OF SYMBICORT
     Route: 055
     Dates: start: 20120407, end: 20120408
  3. HYRALAZINE [Concomitant]
     Indication: HYPERTENSION
  4. NORVASC [Concomitant]
     Indication: HYPERTENSION

REACTIONS (4)
  - ABDOMINAL PAIN [None]
  - OFF LABEL USE [None]
  - ABDOMINAL DISCOMFORT [None]
  - DIZZINESS [None]
